FAERS Safety Report 9909301 (Version 2)
Quarter: 2014Q1

REPORT INFORMATION
  Report Type: Spontaneous
  Country: US (occurrence: US)
  Receive Date: 20140219
  Receipt Date: 20140219
  Transmission Date: 20141002
  Serious: Yes (Hospitalization)
  Sender: FDA-Public Use
  Company Number: US-GILEAD-2011-0048597

PATIENT
  Sex: Female

DRUGS (11)
  1. LETAIRIS [Suspect]
     Indication: PULMONARY ARTERIAL HYPERTENSION
     Dosage: 5 MG, UNK
     Route: 048
     Dates: start: 20110902
  2. ASPIRIN [Concomitant]
  3. WELCHOL [Concomitant]
  4. DIGITEK [Concomitant]
  5. POTASSIUM [Concomitant]
  6. LASIX                              /00032601/ [Concomitant]
  7. REVATIO [Concomitant]
  8. NITROGLYCERIN [Concomitant]
  9. COUMADIN                           /00014802/ [Concomitant]
  10. PLAVIX                             /01220701/ [Concomitant]
  11. JANUVIA [Concomitant]

REACTIONS (2)
  - Dyspnoea [Recovered/Resolved]
  - Local swelling [Recovered/Resolved]
